FAERS Safety Report 16112989 (Version 1)
Quarter: 2019Q1

REPORT INFORMATION
  Report Type: Spontaneous
  Country: US (occurrence: US)
  Receive Date: 20190325
  Receipt Date: 20190325
  Transmission Date: 20190418
  Serious: No
  Sender: FDA-Public Use
  Company Number: US-BAYER-2019-055664

PATIENT

DRUGS (1)
  1. MIRALAX [Suspect]
     Active Substance: POLYETHYLENE GLYCOL 3350
     Indication: DYSPEPSIA
     Dosage: UNK, BID
     Route: 048

REACTIONS (5)
  - Product odour abnormal [Unknown]
  - Product taste abnormal [Unknown]
  - Product use issue [Unknown]
  - Poor quality product administered [None]
  - Product use in unapproved indication [None]
